FAERS Safety Report 6555758-2 (Version None)
Quarter: 2010Q1

REPORT INFORMATION
  Report Type: 
  Country: None (occurrence: None)
  Receive Date: 20100128
  Receipt Date: 20100120
  Transmission Date: 20100710
  Serious: Yes (Hospitalization)
  Sender: FDA-Public Use
  Company Number: US-GILEAD-2009-0026134

PATIENT
  Sex: Female
  Weight: 49.032 kg

DRUGS (13)
  1. LETAIRIS [Suspect]
     Indication: PULMONARY ARTERIAL HYPERTENSION
     Route: 048
     Dates: start: 20091008
  2. WARFARIN SODIUM [Concomitant]
  3. LASIX [Concomitant]
  4. SPIRONOLACTONE [Concomitant]
  5. TIKOSYN [Concomitant]
  6. DILTIAZEM [Concomitant]
  7. MORPHINE SULFATE [Concomitant]
  8. LEVOTHYROXINE SODIUM [Concomitant]
  9. MULTI-VITAMIN [Concomitant]
  10. FISH OIL [Concomitant]
  11. COLACE-T [Concomitant]
  12. MUCINEX [Concomitant]
  13. ASPIRIN [Concomitant]

REACTIONS (1)
  - RIGHT VENTRICULAR FAILURE [None]
